FAERS Safety Report 8099305-5 (Version None)
Quarter: 2012Q1

REPORT INFORMATION
  Report Type: 
  Country: None (occurrence: None)
  Receive Date: 20120126
  Receipt Date: 20120116
  Transmission Date: 20120608
  Serious: Yes (Life-Threatening, Other)
  Sender: FDA-Public Use
  Company Number: 1000026517

PATIENT
  Age: 35 Year
  Sex: Male

DRUGS (11)
  1. DOGMATYL (SULPIRIDE) (SULPIRIDE) [Concomitant]
  2. KIPRES (MONTELUKAST SODIUM) (MONTELUKAST SODIUM) [Concomitant]
  3. ASMEDIN (CIMETIDINE) (DIMETIDINE) [Concomitant]
  4. LEXAPRO [Suspect]
     Indication: DEPRESSION
     Dosage: 10 MG (10 MG, 1 IN 1 D),ORAL
     Route: 048
     Dates: start: 20111116, end: 20111130
  5. ZOLPIDEM TARTRATE [Concomitant]
  6. LEXAPRO [Suspect]
     Indication: DEPRESSION
     Dosage: 20 MG (20 MG, 1 IN 1 D),ORAL
     Route: 048
     Dates: start: 20111201, end: 20111203
  7. DEPAS (ETIZOLAM) (ETIZOLAM) [Concomitant]
  8. DRUG FOR HEADACHE (DRUG FOR HEADACHE) (DRUG FOR HEADACHE) [Concomitant]
  9. WYPAX (LORAZEPAM) (LORAZEPAM) [Concomitant]
  10. LEXOTAN (BROMAZEPAM) (BROMAZEPAM) [Concomitant]
  11. LANSOPRAZOLE [Concomitant]

REACTIONS (9)
  - LOSS OF CONSCIOUSNESS [None]
  - TIC [None]
  - BRADYCARDIA [None]
  - FALL [None]
  - COUGH [None]
  - HEADACHE [None]
  - AMNESIA [None]
  - ASTHENIA [None]
  - PAROSMIA [None]
